FAERS Safety Report 14306943 (Version 4)
Quarter: 2019Q3

REPORT INFORMATION
  Report Type: Report from Study
  Country: JP (occurrence: JP)
  Receive Date: 20171220
  Receipt Date: 20190724
  Transmission Date: 20191004
  Serious: Yes (Hospitalization, Other)
  Sender: FDA-Public Use
  Company Number: JP-009507513-1712JPN001357J

PATIENT
  Age: 75 Year
  Sex: Female
  Weight: 54 kg

DRUGS (3)
  1. PEGINTRON [Suspect]
     Active Substance: PEGINTERFERON ALFA-2B
     Indication: MALIGNANT MELANOMA
     Dosage: 6 MICROGRAM PER KILOGRAM, QW
     Route: 058
     Dates: start: 20171107, end: 20171212
  2. PEGINTRON [Suspect]
     Active Substance: PEGINTERFERON ALFA-2B
     Dosage: 3 MICROGRAM PER KILOGRAM, QW
     Route: 058
     Dates: start: 20171219
  3. PEGINTRON [Suspect]
     Active Substance: PEGINTERFERON ALFA-2B
     Dosage: 2 MICROGRAM PER KILOGRAM, QW
     Route: 058
     Dates: start: 20180109

REACTIONS (6)
  - Granulocyte count decreased [Recovering/Resolving]
  - Productive cough [Recovered/Resolved]
  - Platelet count decreased [Recovering/Resolving]
  - Rhinorrhoea [Recovered/Resolved]
  - Underdose [Unknown]
  - Neutrophil count decreased [Recovered/Resolved]

NARRATIVE: CASE EVENT DATE: 2017
